FAERS Safety Report 24121351 (Version 1)
Quarter: 2024Q3

REPORT INFORMATION
  Report Type: Spontaneous
  Country: JP (occurrence: JP)
  Receive Date: 20240722
  Receipt Date: 20240722
  Transmission Date: 20241017
  Serious: Yes (Other)
  Sender: FERRING
  Company Number: JP-ferring-EVA202401058FERRINGPH

PATIENT

DRUGS (3)
  1. DEGARELIX [Suspect]
     Active Substance: DEGARELIX
     Indication: Prostate cancer
     Dosage: UNK
     Route: 065
  2. DEGARELIX [Suspect]
     Active Substance: DEGARELIX
     Indication: Metastases to bone
  3. APALUTAMIDE [Concomitant]
     Active Substance: APALUTAMIDE
     Indication: Prostate cancer
     Dosage: UNK
     Route: 065

REACTIONS (1)
  - Aplasia pure red cell [Recovering/Resolving]
